FAERS Safety Report 4297171-7 (Version None)
Quarter: 2004Q1

REPORT INFORMATION
  Report Type: 
  Country: None (occurrence: None)
  Receive Date: 20040213
  Receipt Date: 20040202
  Transmission Date: 20041129
  Serious: Yes (Life-Threatening, Hospitalization)
  Sender: FDA-Public Use
  Company Number: 204507

PATIENT
  Sex: Male

DRUGS (2)
  1. RITUXAN [Suspect]
     Indication: LYMPHOMA
     Dosage: 375 MG/M2, Q2M, INTRAVENOUS
     Route: 042
     Dates: start: 20031101
  2. STAVUDINE(STAVUDINE) [Concomitant]

REACTIONS (3)
  - AGRANULOCYTOSIS [None]
  - HEADACHE [None]
  - PYREXIA [None]
